FAERS Safety Report 4677015-1 (Version None)
Quarter: 2005Q2

REPORT INFORMATION
  Report Type: 
  Country: None (occurrence: None)
  Receive Date: 20050526
  Receipt Date: 20050517
  Transmission Date: 20051028
  Serious: Yes (Death, Hospitalization)
  Sender: FDA-Public Use
  Company Number: 2001-01-1652

PATIENT
  Age: 76 Year
  Sex: Male

DRUGS (6)
  1. FLUTAMIDE [Suspect]
     Indication: PROSTATE CANCER
     Dosage: 375 MG DAILY ORAL
     Route: 048
     Dates: start: 20001030, end: 20010104
  2. LEUPROLELIN ACETATE [Concomitant]
  3. TAMSULOSIN HCL [Concomitant]
  4. MAGNESIUM OXDE [Concomitant]
  5. PERINDOPRIL ERBUMINE [Concomitant]
  6. NILVADIPINE [Concomitant]

REACTIONS (21)
  - ABDOMINAL PAIN LOWER [None]
  - ASTHENIA [None]
  - BACK PAIN [None]
  - BLOOD PHOSPHORUS INCREASED [None]
  - DECREASED APPETITE [None]
  - DEHYDRATION [None]
  - DEPRESSION [None]
  - DIFFICULTY IN WALKING [None]
  - FATIGUE [None]
  - GASTRIC ULCER [None]
  - HYPERCALCAEMIA [None]
  - LOSS OF CONSCIOUSNESS [None]
  - METASTASES TO BONE [None]
  - METASTASES TO LIVER [None]
  - METASTASES TO LUNG [None]
  - METASTASES TO LYMPH NODES [None]
  - METASTASES TO PANCREAS [None]
  - METASTASES TO SPINE [None]
  - RENAL IMPAIRMENT [None]
  - SMALL CELL CARCINOMA [None]
  - URINARY TRACT INFECTION [None]
